FAERS Safety Report 9425566 (Version 1)
Quarter: 2013Q3

REPORT INFORMATION
  Report Type: Spontaneous
  Country: US (occurrence: US)
  Receive Date: 20130729
  Receipt Date: 20130729
  Transmission Date: 20140515
  Serious: No
  Sender: FDA-Public Use
  Company Number: US-MYLANLABS-2012S1025279

PATIENT
  Age: 68 Year
  Sex: Female

DRUGS (10)
  1. LEVOTHYROXINE SODIUM TABLETS, USP [Suspect]
     Indication: HYPOTHYROIDISM
     Route: 048
     Dates: start: 20121105
  2. LEVOTHYROXINE SODIUM TABLETS, USP [Suspect]
     Indication: HYPOTHYROIDISM
     Route: 048
     Dates: end: 20121215
  3. PRAVASTATIN [Concomitant]
     Indication: BLOOD CHOLESTEROL INCREASED
  4. ALLEGRA [Concomitant]
     Indication: MULTIPLE ALLERGIES
  5. VITAMIN B-12 [Concomitant]
  6. VITAMIN D3 [Concomitant]
  7. FISH OIL [Concomitant]
  8. BETA CAROTENE [Concomitant]
  9. ZINC [Concomitant]
  10. ASPIRIN [Concomitant]

REACTIONS (2)
  - Diarrhoea [Not Recovered/Not Resolved]
  - Flatulence [Not Recovered/Not Resolved]
